FAERS Safety Report 17305336 (Version 2)
Quarter: 2020Q1

REPORT INFORMATION
  Report Type: Spontaneous
  Country: GB (occurrence: GB)
  Receive Date: 20200123
  Receipt Date: 20200319
  Transmission Date: 20200409
  Serious: Yes (Life-Threatening, Hospitalization)
  Sender: FDA-Public Use
  Company Number: GB-PFIZER INC-2020028851

PATIENT
  Age: 37 Year
  Sex: Male
  Weight: 145 kg

DRUGS (12)
  1. CYTARABINE. [Concomitant]
     Active Substance: CYTARABINE
  2. RITUXIMAB. [Concomitant]
     Active Substance: RITUXIMAB
  3. SODIUM CHLORIDE. [Concomitant]
     Active Substance: SODIUM CHLORIDE
     Dosage: 0.45%+GLUCOSE 2.5%
  4. METHOTREXATE SODIUM. [Suspect]
     Active Substance: METHOTREXATE SODIUM
     Indication: BURKITT^S LYMPHOMA
     Dosage: 7000MG+820MG (250ML/H)
     Route: 042
     Dates: start: 20191208, end: 20191209
  5. VINCRISTINE [Concomitant]
     Active Substance: VINCRISTINE
  6. ACICLOVIR [Concomitant]
     Active Substance: ACYCLOVIR
  7. POTASSIUM [Concomitant]
     Active Substance: POTASSIUM
  8. CALCIUM FOLINATE [Concomitant]
     Active Substance: LEUCOVORIN CALCIUM
     Dosage: 3 HOURLY INTERVALS FOR FIRST 12 HOURS THEN 6 HOURLY.
  9. SODIUM HYDROGEN CARBONATE [Concomitant]
     Active Substance: SODIUM BICARBONATE
     Dosage: 150MMOL
     Dates: start: 20191208, end: 20191208
  10. CYCLOPHOSPHAMIDE. [Concomitant]
     Active Substance: CYCLOPHOSPHAMIDE
  11. DOXORUBICIN [Concomitant]
     Active Substance: DOXORUBICIN
  12. ONDANSETRON [Concomitant]
     Active Substance: ONDANSETRON

REACTIONS (4)
  - Fluid balance positive [Recovered/Resolved]
  - Blood creatinine increased [Recovered/Resolved]
  - Acute kidney injury [Recovered/Resolved]
  - Pleural effusion [Recovered/Resolved]

NARRATIVE: CASE EVENT DATE: 20191208
